FAERS Safety Report 10196278 (Version 1)
Quarter: 2014Q2

REPORT INFORMATION
  Report Type: Report from Study
  Country: US (occurrence: US)
  Receive Date: 20140527
  Receipt Date: 20140527
  Transmission Date: 20141212
  Serious: Yes (Hospitalization)
  Sender: FDA-Public Use
  Company Number: US-JNJFOC-20140512241

PATIENT
  Sex: Male
  Weight: 95.26 kg

DRUGS (9)
  1. REMICADE [Suspect]
     Indication: ANKYLOSING SPONDYLITIS
     Route: 042
  2. REMICADE [Suspect]
     Indication: ANKYLOSING SPONDYLITIS
     Route: 042
     Dates: start: 2014
  3. ETODOLAC [Concomitant]
     Indication: ANKYLOSING SPONDYLITIS
     Route: 048
     Dates: start: 2012
  4. PERCOCET [Concomitant]
     Indication: PAIN
     Dosage: 5-235 MG AS NEEDED
     Route: 048
     Dates: start: 2010
  5. PRILOSEC [Concomitant]
     Indication: GASTROOESOPHAGEAL REFLUX DISEASE
     Route: 048
     Dates: start: 2013
  6. TRAMADOL [Concomitant]
     Indication: PAIN
     Dosage: AS NEEDED
     Route: 048
     Dates: start: 2013
  7. VICODIN [Concomitant]
     Indication: PAIN
     Dosage: AS NEEDED
     Route: 048
     Dates: start: 2013
  8. XANAX [Concomitant]
     Indication: ANXIETY
     Dosage: AS NEEDED
     Route: 048
     Dates: start: 2013
  9. ENBREL [Concomitant]
     Route: 065

REACTIONS (6)
  - Blood disorder [Unknown]
  - Red blood cell count increased [Recovering/Resolving]
  - Pneumonia [Recovered/Resolved]
  - Dehydration [Recovered/Resolved]
  - Ankylosing spondylitis [Recovering/Resolving]
  - Influenza like illness [Recovered/Resolved]
